FAERS Safety Report 19513379 (Version 1)
Quarter: 2021Q3

REPORT INFORMATION
  Report Type: Spontaneous
  Country: US (occurrence: US)
  Receive Date: 20210709
  Receipt Date: 20210709
  Transmission Date: 20211014
  Serious: Yes (Hospitalization, Other)
  Sender: FDA-Public Use
  Company Number: US-ACCORD-224094

PATIENT
  Age: 52 Year
  Sex: Female
  Weight: 89.36 kg

DRUGS (18)
  1. ATORVASTATIN [Concomitant]
     Active Substance: ATORVASTATIN
  2. LEVOTHYROXINE. [Concomitant]
     Active Substance: LEVOTHYROXINE
  3. PROLIA [Concomitant]
     Active Substance: DENOSUMAB
  4. KORLYM [Suspect]
     Active Substance: MIFEPRISTONE
     Indication: CUSHING^S SYNDROME
     Dosage: 600 MG QD
     Route: 048
     Dates: start: 20200730, end: 20200812
  5. DOCETAXEL. [Suspect]
     Active Substance: DOCETAXEL
     Indication: PRODUCT USED FOR UNKNOWN INDICATION
     Dates: start: 20200810
  6. CYANOCOBALAMIN. [Concomitant]
     Active Substance: CYANOCOBALAMIN
  7. MAGNESIUM CITRATE. [Concomitant]
     Active Substance: MAGNESIUM CITRATE
  8. DOXYCYCLINE. [Suspect]
     Active Substance: DOXYCYCLINE
     Indication: CHEMOTHERAPY
  9. UBIDECARENONE. [Concomitant]
     Active Substance: UBIDECARENONE
  10. GEMCITABINE/GEMCITABINE HYDROCHLORIDE [Suspect]
     Active Substance: GEMCITABINE\GEMCITABINE HYDROCHLORIDE
     Indication: PRODUCT USED FOR UNKNOWN INDICATION
     Dates: start: 20200803
  11. VALSARTAN. [Concomitant]
     Active Substance: VALSARTAN
  12. FOLIC ACID. [Concomitant]
     Active Substance: FOLIC ACID
  13. LIDOCAINE/PRILOCAINE [Concomitant]
     Active Substance: LIDOCAINE\PRILOCAINE
  14. KORLYM [Suspect]
     Active Substance: MIFEPRISTONE
     Indication: CUSHING^S SYNDROME
     Dosage: 300 MG QD
     Route: 048
     Dates: start: 20200715, end: 20200729
  15. GABAPENTIN. [Concomitant]
     Active Substance: GABAPENTIN
  16. TRAMADOL. [Concomitant]
     Active Substance: TRAMADOL
  17. KORLYM [Suspect]
     Active Substance: MIFEPRISTONE
     Indication: CUSHING^S SYNDROME
     Dosage: 300 MG QD
     Route: 048
     Dates: start: 20200817
  18. SODIUM BICARBONATE. [Concomitant]
     Active Substance: SODIUM BICARBONATE

REACTIONS (10)
  - Kidney infection [Recovered/Resolved]
  - Hypocalcaemia [Unknown]
  - Blood potassium decreased [Recovered/Resolved]
  - Cardiac dysfunction [Unknown]
  - Blood pressure decreased [Recovered/Resolved]
  - Blood pressure increased [Unknown]
  - Constipation [Recovered/Resolved]
  - Oedema peripheral [Recovered/Resolved]
  - Fungal infection [Unknown]
  - Nausea [Recovered/Resolved]

NARRATIVE: CASE EVENT DATE: 20200807
